FAERS Safety Report 23199228 (Version 1)
Quarter: 2023Q4

REPORT INFORMATION
  Report Type: Spontaneous
  Country: US (occurrence: US)
  Receive Date: 20231117
  Receipt Date: 20231117
  Transmission Date: 20240110
  Serious: No
  Sender: FDA-Public Use
  Company Number: US-Stemline Therapeutics, Inc.-2023ST003941

PATIENT
  Age: 76 Year
  Sex: Female

DRUGS (2)
  1. ORSERDU [Suspect]
     Active Substance: ELACESTRANT
     Indication: Product used for unknown indication
     Dosage: 172 MG, ORALLY, ONCE A DAY
     Route: 048
     Dates: start: 20230916
  2. DILAUDID [Concomitant]
     Active Substance: HYDROMORPHONE HYDROCHLORIDE
     Indication: Product used for unknown indication

REACTIONS (4)
  - Somnolence [Unknown]
  - Musculoskeletal discomfort [Unknown]
  - Nausea [Unknown]
  - Constipation [Unknown]
